FAERS Safety Report 16090706 (Version 1)
Quarter: 2019Q1

REPORT INFORMATION
  Report Type: Report from Study
  Country: None (occurrence: US)
  Receive Date: 20190319
  Receipt Date: 20190319
  Transmission Date: 20190418
  Serious: Yes (Other)
  Sender: FDA-Public Use
  Company Number: US-ABBVIE-19K-163-2708136-00

PATIENT
  Age: 65 Year
  Sex: Male

DRUGS (4)
  1. STELARA [Suspect]
     Active Substance: USTEKINUMAB
     Indication: PRODUCT USED FOR UNKNOWN INDICATION
     Route: 065
     Dates: start: 201612
  2. HUMIRA [Suspect]
     Active Substance: ADALIMUMAB
     Indication: PSORIATIC ARTHROPATHY
     Route: 058
     Dates: start: 2017
  3. HUMIRA [Suspect]
     Active Substance: ADALIMUMAB
     Indication: PSORIASIS
     Route: 058
     Dates: start: 2009
  4. METHADONE [Concomitant]
     Active Substance: METHADONE HYDROCHLORIDE
     Indication: PRODUCT USED FOR UNKNOWN INDICATION

REACTIONS (14)
  - Pain in extremity [Recovering/Resolving]
  - Feeling abnormal [Not Recovered/Not Resolved]
  - Diabetes mellitus [Recovered/Resolved]
  - Psoriatic arthropathy [Recovering/Resolving]
  - Adverse drug reaction [Recovering/Resolving]
  - Apparent death [Unknown]
  - Pain [Unknown]
  - Device issue [Unknown]
  - Overweight [Recovered/Resolved]
  - Excessive skin [Unknown]
  - Psoriasis [Recovering/Resolving]
  - Paralysis [Unknown]
  - Erythema [Unknown]
  - Influenza [Recovered/Resolved]

NARRATIVE: CASE EVENT DATE: 2016
